FAERS Safety Report 7596513-4 (Version None)
Quarter: 2011Q3

REPORT INFORMATION
  Report Type: 
  Country: None (occurrence: None)
  Receive Date: 20110708
  Receipt Date: 20110629
  Transmission Date: 20111222
  Serious: Yes (Hospitalization)
  Sender: FDA-Public Use
  Company Number: US-BIOGENIDEC-2011BI021677

PATIENT
  Age: 49 Year
  Sex: Male

DRUGS (3)
  1. TYSABRI [Suspect]
     Indication: MULTIPLE SCLEROSIS
     Route: 042
     Dates: start: 20110323, end: 20110519
  2. CLARITIN [Concomitant]
     Indication: PREMEDICATION
  3. TYLENOL-500 [Concomitant]
     Indication: PREMEDICATION

REACTIONS (2)
  - HYPERSENSITIVITY [None]
  - DRUG SPECIFIC ANTIBODY PRESENT [None]
